FAERS Safety Report 5050638-6 (Version None)
Quarter: 2006Q3

REPORT INFORMATION
  Report Type: 
  Country: None (occurrence: None)
  Receive Date: 20060710
  Receipt Date: 20060622
  Transmission Date: 20061208
  Serious: Yes (Other)
  Sender: FDA-Public Use
  Company Number: PHBS2006FR09414

PATIENT
  Age: 20 Year
  Sex: Male

DRUGS (6)
  1. CYCLOSPORINE [Suspect]
     Indication: MYOSITIS
     Dates: start: 19910101, end: 19980101
  2. PREDNISONE [Suspect]
     Indication: MYOSITIS
     Dosage: SEE IMAGE
  3. IMMUNOGLOBULINS (IMMUNOGLOBULINS) [Concomitant]
  4. PLASMAPHERESIS (NO INGREDIENTS/SUBSTANCES) [Concomitant]
  5. CYCLOPHOSPHAMIDE [Concomitant]
  6. MYCOPHENOLATE MOFETIL [Concomitant]

REACTIONS (2)
  - DIABETES MELLITUS [None]
  - RENAL FAILURE [None]
